FAERS Safety Report 7419861-7 (Version None)
Quarter: 2011Q2

REPORT INFORMATION
  Report Type: 
  Country: None (occurrence: None)
  Receive Date: 20110413
  Receipt Date: 20110413
  Transmission Date: 20111010
  Serious: Yes (Other)
  Sender: FDA-Public Use
  Company Number: None

PATIENT
  Sex: Female
  Weight: 66.6788 kg

DRUGS (1)
  1. ATIVAN [Suspect]
     Indication: ANXIETY
     Dosage: 1 MG 60 2 DAILY RANBAXY

REACTIONS (3)
  - PRODUCT SUBSTITUTION ISSUE [None]
  - SUBSTANCE ABUSE [None]
  - DRUG INEFFECTIVE [None]
